FAERS Safety Report 8190195-9 (Version None)
Quarter: 2012Q1

REPORT INFORMATION
  Report Type: 
  Country: None (occurrence: None)
  Receive Date: 20120305
  Receipt Date: 20120301
  Transmission Date: 20120608
  Serious: Yes (Death)
  Sender: FDA-Public Use
  Company Number: 2012POI057300006

PATIENT
  Age: 56 Year
  Sex: Female

DRUGS (5)
  1. ETHANOL [Suspect]
     Dates: end: 20100101
  2. ACETAMINOPHEN AND HYDROCODONE BITARTRATE [Suspect]
     Dates: end: 20100101
  3. ALPRAZOLAM [Suspect]
     Dates: end: 20100101
  4. OXYBUTYNIN CHLORIDE [Suspect]
     Dates: end: 20100101
  5. COCAINE [Suspect]
     Dates: end: 20100101

REACTIONS (2)
  - DRUG ABUSE [None]
  - INTENTIONAL DRUG MISUSE [None]
